FAERS Safety Report 11244685 (Version 2)
Quarter: 2015Q3

REPORT INFORMATION
  Report Type: Report from Study
  Country: US (occurrence: US)
  Receive Date: 20150707
  Receipt Date: 20150825
  Transmission Date: 20151125
  Serious: Yes (Other)
  Sender: FDA-Public Use
  Company Number: US-BAYER-2015-012506

PATIENT
  Age: 28 Year
  Sex: Female

DRUGS (7)
  1. VENTAVIS [Suspect]
     Active Substance: ILOPROST
     Indication: PULMONARY HYPERTENSION
     Dosage: 5 MCG, 5-9 X DAILY
     Route: 055
  2. OPSUMIT [Suspect]
     Active Substance: MACITENTAN
     Indication: PULMONARY HYPERTENSION
     Dosage: 10 MG, QD
     Route: 048
  3. ACETYLSALICYLIC ACID(}100 MG) [Suspect]
     Active Substance: ASPIRIN
  4. OPSUMIT [Suspect]
     Active Substance: MACITENTAN
     Indication: PULMONARY HYPERTENSION
     Dosage: 10 MG, QD
     Route: 048
     Dates: start: 20140512
  5. VENTAVIS [Suspect]
     Active Substance: ILOPROST
     Indication: PULMONARY HYPERTENSION
     Dosage: 5 ?G, 5-9 X DAILY
     Route: 055
  6. OPSUMIT [Suspect]
     Active Substance: MACITENTAN
     Indication: PULMONARY HYPERTENSION
     Dosage: 10 MG, QD
     Route: 048
  7. VENTAVIS [Suspect]
     Active Substance: ILOPROST
     Indication: PULMONARY HYPERTENSION
     Dosage: 5 MCG, 5-9 X DAILY
     Route: 055
     Dates: start: 20131009

REACTIONS (5)
  - Endometrial ablation [Unknown]
  - Female sterilisation [Unknown]
  - Abdominal pain [Unknown]
  - Intra-abdominal haemorrhage [Recovered/Resolved]
  - Hysterectomy [Unknown]

NARRATIVE: CASE EVENT DATE: 20150112
